FAERS Safety Report 9732898 (Version 1)
Quarter: 2013Q4

REPORT INFORMATION
  Report Type: Spontaneous
  Country: US (occurrence: US)
  Receive Date: 20131205
  Receipt Date: 20131205
  Transmission Date: 20140711
  Serious: Yes (Other)
  Sender: FDA-Public Use
  Company Number: US-PFIZER INC-2013342763

PATIENT
  Age: 56 Year
  Sex: Female
  Weight: 49.89 kg

DRUGS (1)
  1. LYRICA [Suspect]
     Indication: NEURALGIA
     Dosage: 50 MG, DAILY
     Dates: start: 20130906, end: 20130909

REACTIONS (9)
  - Off label use [Unknown]
  - Coma [Unknown]
  - Dyspnoea [Unknown]
  - Apparent death [Unknown]
  - Respiratory disorder [Unknown]
  - Renal impairment [Unknown]
  - Amnesia [Unknown]
  - Pyrexia [Unknown]
  - Platelet count decreased [Unknown]
